FAERS Safety Report 9149568 (Version 1)
Quarter: 2013Q1

REPORT INFORMATION
  Report Type: Spontaneous
  Country: US (occurrence: US)
  Receive Date: 20130308
  Receipt Date: 20130308
  Transmission Date: 20140127
  Serious: No
  Sender: FDA-Public Use
  Company Number: US-ENDO PHARMACEUTICALS INC.-OPCR20120188

PATIENT
  Age: 38 Year
  Sex: Male

DRUGS (1)
  1. OPANA ER 30MG [Suspect]
     Indication: PAIN
     Route: 048
     Dates: start: 20120324, end: 20120406

REACTIONS (8)
  - Flatulence [Recovered/Resolved]
  - Abdominal pain [Recovered/Resolved]
  - Sleep disorder [Recovered/Resolved]
  - Nausea [Recovered/Resolved]
  - Ureteral spasm [Recovered/Resolved]
  - Vision blurred [Recovered/Resolved]
  - Dizziness [Recovered/Resolved]
  - Drug effect decreased [Recovered/Resolved]
